FAERS Safety Report 4775138-X (Version None)
Quarter: 2005Q3

REPORT INFORMATION
  Report Type: 
  Country: None (occurrence: None)
  Receive Date: 20050920
  Receipt Date: 20050913
  Transmission Date: 20060218
  Serious: Yes (Hospitalization, Other)
  Sender: FDA-Public Use
  Company Number: 2005127055

PATIENT
  Age: 40 Year
  Sex: Female
  Weight: 68.0396 kg

DRUGS (9)
  1. NEURONTIN [Suspect]
     Indication: ILL-DEFINED DISORDER
  2. GABAPENTIN [Suspect]
     Indication: ILL-DEFINED DISORDER
  3. ALL OTHER THERAPEUTIC PRODUCTS (ALL OTHER THERAPEUTIC PRODUCTS) [Concomitant]
  4. HUMULIN R [Concomitant]
  5. DIAZEPAM [Concomitant]
  6. PAXIL [Concomitant]
  7. XANAX [Concomitant]
  8. MAXZIDE [Concomitant]
  9. SEROQUEL [Concomitant]

REACTIONS (11)
  - BEDRIDDEN [None]
  - DIABETES MELLITUS INADEQUATE CONTROL [None]
  - DIARRHOEA [None]
  - ECONOMIC PROBLEM [None]
  - FALL [None]
  - HIP FRACTURE [None]
  - JOINT DISLOCATION [None]
  - MECHANICAL COMPLICATION OF IMPLANT [None]
  - TREATMENT NONCOMPLIANCE [None]
  - VISUAL ACUITY REDUCED [None]
  - WEIGHT INCREASED [None]
